FAERS Safety Report 6084740-7 (Version None)
Quarter: 2009Q1

REPORT INFORMATION
  Report Type: 
  Country: None (occurrence: None)
  Receive Date: 20090217
  Receipt Date: 20090204
  Transmission Date: 20090719
  Serious: No
  Sender: FDA-Public Use
  Company Number: 2009-190877-NL

PATIENT
  Age: 48 Year
  Sex: Male

DRUGS (1)
  1. MIRTAZAPINE [Suspect]
     Dosage: 15 MG QD ORAL
     Route: 048
     Dates: start: 20090101

REACTIONS (1)
  - VITREOUS DETACHMENT [None]
